FAERS Safety Report 19013090 (Version 3)
Quarter: 2021Q1

REPORT INFORMATION
  Report Type: Spontaneous
  Country: US (occurrence: US)
  Receive Date: 20210315
  Receipt Date: 20210326
  Transmission Date: 20210420
  Serious: Yes (Other)
  Sender: FDA-Public Use
  Company Number: US-PFIZER INC-2021194062

PATIENT
  Age: 37 Year
  Sex: Female
  Weight: 58.51 kg

DRUGS (4)
  1. DEPO?MEDROL [Suspect]
     Active Substance: METHYLPREDNISOLONE ACETATE
     Indication: INTERVERTEBRAL DISC PROTRUSION
     Dosage: 120 MG INJECTED TO THE EPIDURAL SPACE S1 TRANSFORMATIONAL AND S1 NERVE ROOT SPINAL PORT
     Route: 008
     Dates: start: 200104
  2. ADVIL [Concomitant]
     Active Substance: IBUPROFEN
     Indication: PAIN
     Dosage: UNK, DAILY
     Route: 048
  3. DEPO?MEDROL [Suspect]
     Active Substance: METHYLPREDNISOLONE ACETATE
     Dosage: UNK
     Route: 037
  4. VICODIN [Concomitant]
     Active Substance: ACETAMINOPHEN\HYDROCODONE BITARTRATE
     Indication: PAIN
     Dosage: 5 MG, AS NEEDED
     Route: 048

REACTIONS (23)
  - Arthritis [Unknown]
  - Papillary thyroid cancer [Recovered/Resolved with Sequelae]
  - Arachnoiditis [Not Recovered/Not Resolved]
  - Product use issue [Unknown]
  - Neck pain [Recovering/Resolving]
  - Dry eye [Unknown]
  - Pain [Unknown]
  - Areflexia [Not Recovered/Not Resolved]
  - Atrophy [Not Recovered/Not Resolved]
  - Osteopenia [Recovering/Resolving]
  - Injection site pain [Unknown]
  - Meningitis [Unknown]
  - Pituitary tumour benign [Not Recovered/Not Resolved]
  - Erythema [Not Recovered/Not Resolved]
  - Hypoaesthesia [Unknown]
  - Off label use [Unknown]
  - Condition aggravated [Recovering/Resolving]
  - Vision blurred [Unknown]
  - Skin discolouration [Recovered/Resolved]
  - Menstrual disorder [Not Recovered/Not Resolved]
  - Periorbital swelling [Not Recovered/Not Resolved]
  - Blister [Unknown]
  - Sensitive skin [Unknown]

NARRATIVE: CASE EVENT DATE: 2001
